FAERS Safety Report 8069927-6 (Version None)
Quarter: 2012Q1

REPORT INFORMATION
  Report Type: 
  Country: None (occurrence: None)
  Receive Date: 20120125
  Receipt Date: 20120125
  Transmission Date: 20120608
  Serious: Yes (Other)
  Sender: FDA-Public Use
  Company Number: None

PATIENT
  Sex: Male

DRUGS (3)
  1. RIBAVIRIN [Concomitant]
     Indication: HEPATITIS C
     Dosage: 600MG
     Route: 048
     Dates: start: 20110810, end: 20120120
  2. INCIVEK [Concomitant]
  3. PEGASYS [Suspect]
     Indication: HEPATITIS C
     Dosage: 180MCG
     Route: 058
     Dates: start: 20110810, end: 20120120

REACTIONS (2)
  - AGGRESSION [None]
  - HOMICIDAL IDEATION [None]
